FAERS Safety Report 6931650-6 (Version None)
Quarter: 2010Q3

REPORT INFORMATION
  Report Type: 
  Country: None (occurrence: None)
  Receive Date: 20100813
  Receipt Date: 20100624
  Transmission Date: 20110219
  Serious: Yes (Hospitalization)
  Sender: FDA-Public Use
  Company Number: 1000014521

PATIENT
  Age: 51 Year
  Sex: Female
  Weight: 97.93 kg

DRUGS (13)
  1. SAVELLA [Suspect]
     Indication: DEPRESSION
     Dosage: 100 MG (100 MG, 1 IN 1 D), ORAL
     Route: 048
     Dates: start: 20091110, end: 20091113
  2. XANAX XR [Concomitant]
  3. BUSPAR [Concomitant]
  4. RESTORIL [Concomitant]
  5. CYMBALTA [Concomitant]
  6. SEROQUEL [Concomitant]
  7. ALLEGRA [Concomitant]
  8. BENICAR [Concomitant]
  9. WELLBUTRIN XL [Concomitant]
  10. HYDROCHLOROTHIAZIDE [Concomitant]
  11. ATIVAN [Concomitant]
  12. ACETAMINOPHEN [Concomitant]
  13. ASMANEX TWISTHALER [Concomitant]

REACTIONS (4)
  - DEPRESSION [None]
  - HEADACHE [None]
  - NAUSEA [None]
  - SUICIDAL IDEATION [None]
